FAERS Safety Report 9683189 (Version 1)
Quarter: 2013Q4

REPORT INFORMATION
  Report Type: Spontaneous
  Country: DE (occurrence: DE)
  Receive Date: 20131112
  Receipt Date: 20131112
  Transmission Date: 20140711
  Serious: Yes (Hospitalization)
  Sender: FDA-Public Use
  Company Number: DE-ELI_LILLY_AND_COMPANY-DE201310010203

PATIENT
  Age: 21 Year
  Sex: Female

DRUGS (6)
  1. OLANZAPINE [Suspect]
     Indication: SCHIZOPHRENIA, PARANOID TYPE
     Dosage: 7.5 MG, BID
     Route: 048
  2. ATOSIL                             /00033002/ [Concomitant]
     Indication: RESTLESSNESS
     Dosage: 25 MG, QD
     Route: 048
  3. ATOSIL                             /00033002/ [Concomitant]
     Dosage: 50 MG, EACH EVENING
  4. MIRTAZAPIN [Concomitant]
     Indication: PRODUCT USED FOR UNKNOWN INDICATION
     Dosage: 15 MG, QD
     Route: 048
  5. PANTOPRAZOL [Concomitant]
     Indication: NAUSEA
     Dosage: 40 MG, QD
     Route: 048
  6. METOPROLOL [Concomitant]
     Indication: HYPERTENSION
     Dosage: 23.75 MG, QD
     Route: 048

REACTIONS (1)
  - Breast discharge [Not Recovered/Not Resolved]
